FAERS Safety Report 4829428-2 (Version None)
Quarter: 2005Q4

REPORT INFORMATION
  Report Type: 
  Country: None (occurrence: None)
  Receive Date: 20051116
  Receipt Date: 20050826
  Transmission Date: 20060501
  Serious: Yes (Other)
  Sender: FDA-Public Use
  Company Number: DE-MERCK-0508DEU00194

PATIENT
  Age: 29 Year
  Sex: Male
  Weight: 72 kg

DRUGS (1)
  1. PROPECIA [Suspect]
     Indication: MALE PATTERN BALDNESS
     Route: 048
     Dates: start: 20050401, end: 20050601

REACTIONS (1)
  - PANCREATITIS [None]
